FAERS Safety Report 11143312 (Version 1)
Quarter: 2015Q2

REPORT INFORMATION
  Report Type: Spontaneous
  Country: IN (occurrence: IN)
  Receive Date: 20150526
  Receipt Date: 20150526
  Transmission Date: 20150821
  Serious: Yes (Hospitalization)
  Sender: FDA-Public Use
  Company Number: IN-ALKEM-001013

PATIENT
  Age: 31 Year
  Sex: Female

DRUGS (1)
  1. AMLODIPINE [Suspect]
     Active Substance: AMLODIPINE BESYLATE

REACTIONS (5)
  - Hypotension [Recovering/Resolving]
  - Intentional overdose [Unknown]
  - Non-cardiogenic pulmonary oedema [Recovering/Resolving]
  - Vomiting [Recovering/Resolving]
  - Respiratory distress [Recovering/Resolving]
